FAERS Safety Report 5819709-8 (Version None)
Quarter: 2008Q3

REPORT INFORMATION
  Report Type: 
  Country: None (occurrence: None)
  Receive Date: 20080723
  Receipt Date: 20080711
  Transmission Date: 20090109
  Serious: Yes (Hospitalization, Other)
  Sender: FDA-Public Use
  Company Number: US-ELI_LILLY_AND_COMPANY-US200807002428

PATIENT
  Sex: Female

DRUGS (1)
  1. FORTEO [Suspect]
     Dates: start: 20070601, end: 20070917

REACTIONS (7)
  - BONE PAIN [None]
  - BREAST CANCER [None]
  - FATIGUE [None]
  - KIDNEY INFECTION [None]
  - METASTASES TO LYMPH NODES [None]
  - NEUTROPENIA [None]
  - THROMBOSIS [None]
